FAERS Safety Report 6653950-X (Version None)
Quarter: 2010Q1

REPORT INFORMATION
  Report Type: 
  Country: None (occurrence: None)
  Receive Date: 20100326
  Receipt Date: 20100223
  Transmission Date: 20100710
  Serious: No
  Sender: FDA-Public Use
  Company Number: US-BAUSCH-2010BL001065

PATIENT

DRUGS (1)
  1. BESIVANCE [Suspect]
     Indication: OFF LABEL USE
     Route: 047

REACTIONS (1)
  - CONJUNCTIVAL HYPERAEMIA [None]
